FAERS Safety Report 4393698-8 (Version None)
Quarter: 2004Q3

REPORT INFORMATION
  Report Type: 
  Country: None (occurrence: None)
  Receive Date: 20040709
  Receipt Date: 20040628
  Transmission Date: 20050211
  Serious: Yes (Other)
  Sender: FDA-Public Use
  Company Number: PHEH2004US07068

PATIENT
  Age: 87 Year

DRUGS (2)
  1. LOTREL [Suspect]
  2. DIOVAN HCT [Concomitant]

REACTIONS (2)
  - CREATININE RENAL CLEARANCE DECREASED [None]
  - RENAL ARTERY STENOSIS [None]
